FAERS Safety Report 10178226 (Version 1)
Quarter: 2014Q2

REPORT INFORMATION
  Report Type: Spontaneous
  Country: CA (occurrence: CA)
  Receive Date: 20140519
  Receipt Date: 20140519
  Transmission Date: 20141212
  Serious: Yes (Other)
  Sender: FDA-Public Use
  Company Number: CA-ROCHE-1400595

PATIENT
  Sex: Female
  Weight: 90 kg

DRUGS (16)
  1. RITUXAN [Suspect]
     Indication: PRODUCT USED FOR UNKNOWN INDICATION
     Dosage: THERAPY DURATION: 288 DAYS
     Route: 042
  2. CELEBREX [Suspect]
     Indication: PRODUCT USED FOR UNKNOWN INDICATION
     Route: 065
  3. ACETAMINOPHEN [Concomitant]
     Route: 065
  4. ACTONEL [Concomitant]
     Route: 048
  5. DICLOFENAC [Concomitant]
     Route: 065
  6. ERGOCALCIFEROL [Concomitant]
     Route: 065
  7. HYDROQUININE [Concomitant]
  8. LORAZEPAM [Concomitant]
     Route: 065
  9. METHYLPREDNISOLONE [Concomitant]
     Route: 065
  10. MIRTAZAPINE [Concomitant]
     Route: 065
  11. NITRAZEPAM [Concomitant]
     Route: 065
  12. PANTOLOC [Concomitant]
     Route: 065
  13. PREDNISONE [Concomitant]
     Route: 065
  14. METHOTREXATE [Concomitant]
     Route: 065
  15. FOLIC ACID [Concomitant]
     Route: 065
  16. AMITRIPTYLINE [Concomitant]
     Route: 065

REACTIONS (9)
  - Back pain [Not Recovered/Not Resolved]
  - Condition aggravated [Not Recovered/Not Resolved]
  - Drug ineffective [Unknown]
  - Gait disturbance [Not Recovered/Not Resolved]
  - Hypoaesthesia [Not Recovered/Not Resolved]
  - Intervertebral disc degeneration [Not Recovered/Not Resolved]
  - Nausea [Not Recovered/Not Resolved]
  - Vomiting [Not Recovered/Not Resolved]
  - Weight decreased [Not Recovered/Not Resolved]
